FAERS Safety Report 13225477 (Version 1)
Quarter: 2017Q1

REPORT INFORMATION
  Report Type: Spontaneous
  Country: US (occurrence: US)
  Receive Date: 20170211
  Receipt Date: 20170211
  Transmission Date: 20170428
  Serious: No
  Sender: FDA-Public Use
  Company Number: None

PATIENT
  Age: 72 Year
  Sex: Male

DRUGS (1)
  1. ENBREL [Suspect]
     Active Substance: ETANERCEPT
     Indication: RHEUMATOID ARTHRITIS
     Dosage: 50MG EVERY WEEK SUB-Q
     Route: 058
     Dates: start: 20161027, end: 20170105

REACTIONS (2)
  - Nasopharyngitis [None]
  - Therapy cessation [None]

NARRATIVE: CASE EVENT DATE: 20161205
